FAERS Safety Report 7035822-4 (Version None)
Quarter: 2010Q4

REPORT INFORMATION
  Report Type: 
  Country: None (occurrence: None)
  Receive Date: 20101008
  Receipt Date: 20101005
  Transmission Date: 20110411
  Serious: Yes (Other)
  Sender: FDA-Public Use
  Company Number: US-RB-014849-10

PATIENT
  Age: 53 Year
  Sex: Female

DRUGS (1)
  1. SUBOXONE TABLETS [Suspect]
     Indication: PRODUCT USED FOR UNKNOWN INDICATION
     Dosage: UNKNOWN DOSING DETAILS
     Route: 065

REACTIONS (2)
  - BREAST CANCER [None]
  - DEPRESSION [None]
